FAERS Safety Report 9157744 (Version 2)
Quarter: 2013Q4

REPORT INFORMATION
  Report Type: Spontaneous
  Country: US (occurrence: None)
  Receive Date: 20130213
  Receipt Date: 20131007
  Transmission Date: 20140711
  Serious: Yes (Hospitalization)
  Sender: FDA-Public Use
  Company Number: AUR-APL-2012-03102

PATIENT
  Age: 84 Year
  Sex: Male
  Weight: 62 kg

DRUGS (6)
  1. RAMIPRIL [Suspect]
     Indication: PRODUCT USED FOR UNKNOWN INDICATION
     Dosage: 1 IN 1 D
     Dates: start: 201110, end: 20120625
  2. FOLIC ACID (FOLIC ACID) [Concomitant]
  3. LANSOPRAZOLE (LANSOPRAZOLE) [Concomitant]
  4. MACROGOL (MACROGOL) [Concomitant]
  5. PARACETAMOL (PARACETAMOL) [Concomitant]
  6. ZOPICLONE (ZOPICLONE) [Concomitant]

REACTIONS (6)
  - Renal failure acute [None]
  - Renal failure acute [None]
  - Dehydration [None]
  - Abdominal pain [None]
  - Blood alkaline phosphatase increased [None]
  - C-reactive protein increased [None]
